FAERS Safety Report 12505112 (Version 1)
Quarter: 2016Q2

REPORT INFORMATION
  Report Type: Spontaneous
  Country: FR (occurrence: FR)
  Receive Date: 20160628
  Receipt Date: 20160628
  Transmission Date: 20160815
  Serious: Yes (Hospitalization)
  Sender: FDA-Public Use
  Company Number: FR-TEVA-669579ISR

PATIENT
  Age: 16 Year
  Sex: Female

DRUGS (4)
  1. PARACETAMOL [Suspect]
     Active Substance: ACETAMINOPHEN
     Indication: CELL DEATH
     Dosage: 4 GRAM DAILY; IN ONE INTAKE
     Route: 048
     Dates: start: 20160530, end: 20160530
  2. ANTADYS [Suspect]
     Active Substance: FLURBIPROFEN
     Indication: CELL DEATH
     Dosage: 2 DOSAGE FORMS DAILY; IN ONE INTAKE
     Dates: start: 20160530, end: 20160530
  3. EFFERALGAN [Suspect]
     Active Substance: ACETAMINOPHEN
     Indication: CELL DEATH
     Dosage: 2 DOSAGE FORMS DAILY; IN ONE INTAKE
     Route: 048
     Dates: start: 20160530, end: 20160530
  4. SPASFON [Suspect]
     Active Substance: PHLOROGLUCINOL
     Indication: CELL DEATH
     Dosage: 2 DOSAGE FORMS DAILY; IN ONE INTAKE
     Route: 048
     Dates: start: 20160530, end: 20160530

REACTIONS (2)
  - Hepatocellular injury [Recovered/Resolved]
  - Toxicity to various agents [Unknown]

NARRATIVE: CASE EVENT DATE: 20160530
